FAERS Safety Report 8098350-3 (Version None)
Quarter: 2012Q1

REPORT INFORMATION
  Report Type: 
  Country: None (occurrence: None)
  Receive Date: 20120131
  Receipt Date: 20120126
  Transmission Date: 20120608
  Serious: Yes (Disabling, Other)
  Sender: FDA-Public Use
  Company Number: US-TEVA-314449USA

PATIENT
  Sex: Male

DRUGS (1)
  1. SIMVASTATIN [Suspect]
     Indication: BLOOD CHOLESTEROL INCREASED
     Dosage: 20 MILLIGRAM;
     Route: 048
     Dates: start: 20060807, end: 20110701

REACTIONS (6)
  - FATIGUE [None]
  - INSOMNIA [None]
  - PULMONARY FIBROSIS [None]
  - DYSPNOEA [None]
  - EOSINOPHILIC PNEUMONIA [None]
  - MUSCLE SPASMS [None]
